FAERS Safety Report 15432731 (Version 2)
Quarter: 2018Q4

REPORT INFORMATION
  Report Type: Report from Study
  Country: US (occurrence: US)
  Receive Date: 20180927
  Receipt Date: 20181002
  Transmission Date: 20190204
  Serious: Yes (Hospitalization, Other)
  Sender: FDA-Public Use
  Company Number: US-ROCHE-2190230

PATIENT
  Sex: Female

DRUGS (1)
  1. RITUXAN [Suspect]
     Active Substance: RITUXIMAB
     Indication: NEUROMYELITIS OPTICA SPECTRUM DISORDER
     Dosage: ONGOING: NO
     Route: 065

REACTIONS (4)
  - Off label use [Unknown]
  - Ill-defined disorder [Unknown]
  - Malaise [Unknown]
  - Intentional product use issue [Unknown]
